FAERS Safety Report 7681758-5 (Version None)
Quarter: 2011Q3

REPORT INFORMATION
  Report Type: 
  Country: None (occurrence: None)
  Receive Date: 20110812
  Receipt Date: 20110803
  Transmission Date: 20111222
  Serious: Yes (Hospitalization)
  Sender: FDA-Public Use
  Company Number: IT-GENENTECH-322355

PATIENT
  Sex: Female

DRUGS (3)
  1. NORFLOXACIN [Concomitant]
     Indication: PRODUCT USED FOR UNKNOWN INDICATION
     Dosage: UNK
     Dates: start: 20110706
  2. POVIDONE IODINE [Concomitant]
     Indication: PRODUCT USED FOR UNKNOWN INDICATION
  3. LUCENTIS [Suspect]
     Indication: MACULOPATHY
     Dosage: 1 DF, UNKNOWN
     Route: 031
     Dates: start: 20110706

REACTIONS (1)
  - CEREBROVASCULAR DISORDER [None]
